FAERS Safety Report 8485652-1 (Version None)
Quarter: 2012Q3

REPORT INFORMATION
  Report Type: 
  Country: None (occurrence: None)
  Receive Date: 20120703
  Receipt Date: 20120628
  Transmission Date: 20120928
  Serious: Yes (Other)
  Sender: FDA-Public Use
  Company Number: TR-ROXANE LABORATORIES, INC.-2012-RO-01497RO

PATIENT
  Age: 32 Year
  Sex: Female

DRUGS (2)
  1. OXCARBAZEPINE [Suspect]
     Indication: BRAIN OPERATION
  2. TOPIRAMATE [Suspect]
     Indication: BRAIN OPERATION

REACTIONS (1)
  - ABORTION INDUCED [None]
